FAERS Safety Report 11673159 (Version 1)
Quarter: 2015Q4

REPORT INFORMATION
  Report Type: Spontaneous
  Country: US (occurrence: US)
  Receive Date: 20151028
  Receipt Date: 20151028
  Transmission Date: 20160304
  Serious: No
  Sender: FDA-Public Use
  Company Number: PHEH2015US003691

PATIENT
  Age: 8 Year
  Sex: Male

DRUGS (2)
  1. FOCALIN XR [Suspect]
     Active Substance: DEXMETHYLPHENIDATE HYDROCHLORIDE
     Indication: PRODUCT USED FOR UNKNOWN INDICATION
     Dosage: 5 MG, UNK
     Route: 065
  2. FOCALIN XR [Suspect]
     Active Substance: DEXMETHYLPHENIDATE HYDROCHLORIDE
     Dosage: 0.5 DF, UNK (HALF CAPSULE)
     Route: 065

REACTIONS (5)
  - Peripheral coldness [Unknown]
  - Limb discomfort [Unknown]
  - Dizziness [Unknown]
  - Wrong technique in product usage process [Unknown]
  - Tremor [Unknown]
